FAERS Safety Report 6572616-8 (Version None)
Quarter: 2010Q1

REPORT INFORMATION
  Report Type: 
  Country: None (occurrence: None)
  Receive Date: 20100205
  Receipt Date: 20100112
  Transmission Date: 20100710
  Serious: Yes (Hospitalization, Other)
  Sender: FDA-Public Use
  Company Number: US-NAPPMUNDI-USA-2009-0038220

PATIENT
  Sex: Male

DRUGS (3)
  1. OXYCONTIN [Suspect]
     Indication: PAIN
     Dosage: 20 MG, SEE TEXT
     Dates: start: 20010315, end: 20020730
  2. OXYCONTIN [Suspect]
     Indication: NECK PAIN
  3. OXYCONTIN [Suspect]
     Indication: BACK PAIN

REACTIONS (4)
  - DRUG DEPENDENCE [None]
  - DRUG WITHDRAWAL SYNDROME [None]
  - INJURY [None]
  - SUICIDAL IDEATION [None]
